FAERS Safety Report 7397320-8 (Version None)
Quarter: 2011Q2

REPORT INFORMATION
  Report Type: 
  Country: None (occurrence: None)
  Receive Date: 20110406
  Receipt Date: 20110331
  Transmission Date: 20111010
  Serious: Yes (Other)
  Sender: FDA-Public Use
  Company Number: JP-PFIZER INC-2011071258

PATIENT
  Sex: Male

DRUGS (1)
  1. LYRICA [Suspect]
     Dosage: 75MG IN AM AND 150MG IN PM
     Route: 048

REACTIONS (2)
  - DELIRIUM [None]
  - RENAL IMPAIRMENT [None]
